FAERS Safety Report 25373345 (Version 1)
Quarter: 2025Q2

REPORT INFORMATION
  Report Type: Spontaneous
  Country: US (occurrence: US)
  Receive Date: 20250529
  Receipt Date: 20250529
  Transmission Date: 20250716
  Serious: No
  Sender: CIPLA
  Company Number: US-CIPLA LTD.-2024US09260

PATIENT

DRUGS (2)
  1. ALBUTEROL [Suspect]
     Active Substance: ALBUTEROL
     Indication: Bronchitis viral
     Dates: start: 20240807
  2. ALBUTEROL [Suspect]
     Active Substance: ALBUTEROL
     Indication: Lung disorder

REACTIONS (8)
  - Bronchitis viral [Unknown]
  - Condition aggravated [Unknown]
  - Wrong technique in device usage process [Unknown]
  - Incorrect dose administered by device [Unknown]
  - Device delivery system issue [Unknown]
  - Off label use [Unknown]
  - Product use complaint [Unknown]
  - Device issue [Unknown]

NARRATIVE: CASE EVENT DATE: 20240801
